FAERS Safety Report 7488750-4 (Version None)
Quarter: 2011Q2

REPORT INFORMATION
  Report Type: 
  Country: None (occurrence: None)
  Receive Date: 20110518
  Receipt Date: 20110511
  Transmission Date: 20111010
  Serious: Yes (Hospitalization, Other)
  Sender: FDA-Public Use
  Company Number: JP-ABBOTT-11P-087-0721314-00

PATIENT
  Sex: Female

DRUGS (4)
  1. MESALAMINE [Concomitant]
     Indication: CROHN'S DISEASE
     Route: 048
  2. HUMIRA [Suspect]
  3. HUMIRA [Suspect]
     Dates: start: 20110413, end: 20110413
  4. HUMIRA [Suspect]
     Indication: CROHN'S DISEASE
     Route: 058
     Dates: start: 20110330, end: 20110330

REACTIONS (2)
  - PYREXIA [None]
  - COLONIC STENOSIS [None]
